FAERS Safety Report 6723591-4 (Version None)
Quarter: 2010Q2

REPORT INFORMATION
  Report Type: 
  Country: None (occurrence: None)
  Receive Date: 20100513
  Receipt Date: 20100503
  Transmission Date: 20101027
  Serious: Yes (Disabling, Other)
  Sender: FDA-Public Use
  Company Number: US-ABBOTT-10P-163-0638034-00

PATIENT
  Sex: Female
  Weight: 77.18 kg

DRUGS (2)
  1. HUMIRA [Suspect]
     Indication: RHEUMATOID ARTHRITIS
     Route: 058
     Dates: start: 20080401
  2. PREMARIN [Concomitant]
     Indication: MENOPAUSE
     Dates: start: 20000101

REACTIONS (18)
  - ARTHRALGIA [None]
  - EAR INJURY [None]
  - HEAD INJURY [None]
  - HEADACHE [None]
  - HYPERACUSIS [None]
  - HYPOACUSIS [None]
  - INJECTION SITE HAEMATOMA [None]
  - INJECTION SITE PAIN [None]
  - INTERVERTEBRAL DISC INJURY [None]
  - JOINT CREPITATION [None]
  - LIGAMENT SPRAIN [None]
  - MEDICAL DEVICE COMPLICATION [None]
  - PARANOIA [None]
  - POSTOPERATIVE WOUND INFECTION [None]
  - PROCEDURAL PAIN [None]
  - ROAD TRAFFIC ACCIDENT [None]
  - TRISMUS [None]
  - WEIGHT DECREASED [None]
